FAERS Safety Report 9175401 (Version 2)
Quarter: 2013Q1

REPORT INFORMATION
  Report Type: Spontaneous
  Country: FR (occurrence: FR)
  Receive Date: 20130320
  Receipt Date: 20130320
  Transmission Date: 20140127
  Serious: Yes (Life-Threatening)
  Sender: FDA-Public Use
  Company Number: FR-JNJFOC-2004228034FR

PATIENT
  Age: 18 Month
  Sex: Male

DRUGS (9)
  1. IBUPROFEN [Suspect]
     Indication: ILL-DEFINED DISORDER
     Dosage: FREQUENCY TEXT: UNKNOWN
     Route: 048
     Dates: start: 20040214, end: 20040216
  2. METOCLOPRAMIDE HYDROCHLORIDE [Suspect]
     Indication: ILL-DEFINED DISORDER
     Dosage: FREQUENCY TEXT: UNKNOWN
     Route: 048
     Dates: start: 20040214, end: 20040216
  3. NIFUROXAZIDE [Suspect]
     Indication: ILL-DEFINED DISORDER
     Dosage: FREQUENCY TEXT: UNKNOWN
     Route: 048
     Dates: start: 20040214, end: 20040216
  4. TIXOCORTOL PIVALATE [Suspect]
     Indication: COUGH
     Dosage: FREQUENCY TEXT: UNKNOWN
     Route: 045
     Dates: start: 20040212, end: 20040214
  5. VANTIN [Suspect]
     Indication: ILL-DEFINED DISORDER
     Dosage: FREQUENCY TEXT: UNKNOWN
     Route: 048
     Dates: start: 20040216, end: 20040216
  6. MAXILASE [Concomitant]
     Indication: ILL-DEFINED DISORDER
     Dosage: FREQUENCY TEXT: UNKNOWN
     Route: 048
     Dates: start: 20040212, end: 20040214
  7. PARACETAMOL [Concomitant]
     Indication: ILL-DEFINED DISORDER
     Dosage: FREQUENCY TEXT: UNKNOWN
     Route: 065
     Dates: start: 20040214
  8. DOMPERIDONE [Concomitant]
     Indication: ILL-DEFINED DISORDER
     Dosage: FREQUENCY TEXT: UNKNOWN
     Route: 065
  9. SMECTA /OLD FORM/ [Concomitant]
     Indication: ILL-DEFINED DISORDER
     Dosage: FREQUENCY TEXT: UNKNOWN
     Route: 048

REACTIONS (3)
  - Haemolytic anaemia [Recovered/Resolved]
  - Renal failure acute [Recovered/Resolved]
  - Renal tubular necrosis [Recovered/Resolved]
